FAERS Safety Report 22276225 (Version 2)
Quarter: 2023Q2

REPORT INFORMATION
  Report Type: Spontaneous
  Country: JP (occurrence: JP)
  Receive Date: 20230502
  Receipt Date: 20230605
  Transmission Date: 20230722
  Serious: Yes (Life-Threatening, Other)
  Sender: FDA-Public Use
  Company Number: JP-CHUGAI-2023015230

PATIENT
  Age: 68 Year
  Sex: Male
  Weight: 60 kg

DRUGS (10)
  1. AVASTIN [Suspect]
     Active Substance: BEVACIZUMAB
     Indication: Brain neoplasm
     Route: 041
     Dates: start: 20230210, end: 20230224
  2. TEMOZOLOMIDE [Concomitant]
     Active Substance: TEMOZOLOMIDE
     Indication: Brain neoplasm
     Dosage: UNK
     Route: 065
  3. BETAMETHASONE [Concomitant]
     Active Substance: BETAMETHASONE
     Dosage: UNK
     Route: 065
  4. LOXOPROFEN SODIUM DIHYDRATE [Concomitant]
     Active Substance: LOXOPROFEN SODIUM DIHYDRATE
     Dosage: UNK
     Route: 065
  5. TAPENTADOL HYDROCHLORIDE [Concomitant]
     Active Substance: TAPENTADOL HYDROCHLORIDE
     Dosage: UNK
     Route: 048
  6. LANSOPRAZOLE [Concomitant]
     Active Substance: LANSOPRAZOLE
     Dosage: UNK
     Route: 048
     Dates: start: 20230202, end: 20230425
  7. SILODOSIN OD [Concomitant]
     Dosage: UNK
     Route: 048
     Dates: start: 20230221, end: 20230425
  8. AMLODIPINE BESYLATE [Concomitant]
     Active Substance: AMLODIPINE BESYLATE
     Dosage: UNK
     Route: 048
     Dates: start: 20230119, end: 20230425
  9. LEVETIRACETAM [Concomitant]
     Active Substance: LEVETIRACETAM
     Dosage: UNK
     Route: 048
     Dates: start: 20230119, end: 20230425
  10. POSTERISAN FORTE [ESCHERICHIA COLI;HYDROCORTISONE] [Concomitant]
     Dosage: UNK
     Route: 054
     Dates: start: 20230301, end: 20230314

REACTIONS (3)
  - Peptic ulcer perforation [Recovered/Resolved]
  - Gastrointestinal haemorrhage [Recovered/Resolved]
  - Metastases to meninges [Unknown]

NARRATIVE: CASE EVENT DATE: 20230310
